FAERS Safety Report 4941629-1 (Version None)
Quarter: 2006Q1

REPORT INFORMATION
  Report Type: 
  Country: None (occurrence: None)
  Receive Date: 20060308
  Receipt Date: 20060302
  Transmission Date: 20060701
  Serious: Yes (Other)
  Sender: FDA-Public Use
  Company Number: HQWYE787901DEC05

PATIENT
  Age: 77 Year
  Sex: Male

DRUGS (5)
  1. PANTOLOC (PANTOPRAZOLE, UNSPEC) [Suspect]
     Indication: DYSPEPSIA
     Dosage: 40 MG 1X PER 1 DAY
     Route: 048
     Dates: start: 20051026, end: 20051128
  2. LIPITOR [Concomitant]
  3. PLAVIX [Concomitant]
  4. ACETYLSALICYLIC ACID SRT [Concomitant]
  5. LISINOPRIL [Concomitant]

REACTIONS (1)
  - GYNAECOMASTIA [None]
